FAERS Safety Report 4361347-0 (Version None)
Quarter: 2004Q2

REPORT INFORMATION
  Report Type: 
  Country: None (occurrence: None)
  Receive Date: 20040521
  Receipt Date: 20040511
  Transmission Date: 20050107
  Serious: Yes (Hospitalization)
  Sender: FDA-Public Use
  Company Number: PHRM2004FR01809

PATIENT
  Age: 72 Year
  Sex: Female

DRUGS (6)
  1. VOLTAREN [Suspect]
     Route: 054
     Dates: start: 20040403, end: 20040427
  2. VIOXX [Suspect]
     Indication: ARTHRALGIA
     Route: 048
     Dates: start: 20040310, end: 20040427
  3. ZOLPIDEM TARTRATE [Concomitant]
     Route: 048
  4. ZOCOR [Concomitant]
     Dosage: 20 MG/DAY
     Route: 048
  5. LEVOTHYROXINE SODIUM [Concomitant]
     Indication: HYPOTHYROIDISM POSTOPERATIVE
     Dosage: 100 UG/DAY
     Route: 048
  6. SECTRAL [Concomitant]
     Indication: ESSENTIAL HYPERTENSION
     Dosage: 200 MG/DAY
     Route: 048

REACTIONS (6)
  - ATRIOVENTRICULAR BLOCK FIRST DEGREE [None]
  - BRADYCARDIA [None]
  - CARDIOMEGALY [None]
  - CHEST PAIN [None]
  - DYSPNOEA [None]
  - MALAISE [None]
